FAERS Safety Report 6986656-8 (Version None)
Quarter: 2010Q3

REPORT INFORMATION
  Report Type: 
  Country: None (occurrence: None)
  Receive Date: 20100915
  Receipt Date: 20090721
  Transmission Date: 20110219
  Serious: No
  Sender: FDA-Public Use
  Company Number: US-WYE-H10249309

PATIENT
  Sex: Male
  Weight: 81.72 kg

DRUGS (2)
  1. PRISTIQ [Suspect]
     Indication: DEPRESSION
     Route: 048
     Dates: start: 20090701, end: 20090701
  2. PRISTIQ [Suspect]
     Route: 048
     Dates: start: 20090701, end: 20090101

REACTIONS (4)
  - ABDOMINAL DISCOMFORT [None]
  - DYSGEUSIA [None]
  - FATIGUE [None]
  - FEELING ABNORMAL [None]
